FAERS Safety Report 5655622-7 (Version None)
Quarter: 2008Q1

REPORT INFORMATION
  Report Type: 
  Country: None (occurrence: None)
  Receive Date: 20080307
  Receipt Date: 20080229
  Transmission Date: 20080703
  Serious: Yes (Other)
  Sender: FDA-Public Use
  Company Number: JP-JNJFOC-20080300434

PATIENT

DRUGS (1)
  1. RISPERDAL [Suspect]
     Indication: DRUG EXPOSURE DURING PREGNANCY
     Route: 064

REACTIONS (6)
  - ACIDOSIS [None]
  - CLONIC CONVULSION [None]
  - HEART RATE DECREASED [None]
  - MUSCLE SPASMS [None]
  - TACHYCARDIA [None]
  - WITHDRAWAL SYNDROME [None]
